FAERS Safety Report 26118769 (Version 1)
Quarter: 2025Q4

REPORT INFORMATION
  Report Type: Spontaneous
  Country: EU (occurrence: EU)
  Receive Date: 20251203
  Receipt Date: 20251203
  Transmission Date: 20260118
  Serious: Yes (Other)
  Sender: JOHNSON AND JOHNSON
  Company Number: EU-ABBVIE-6559458

PATIENT
  Age: 54 Year
  Sex: Male

DRUGS (6)
  1. USTEKINUMAB [Suspect]
     Active Substance: USTEKINUMAB
     Indication: Product used for unknown indication
  2. GOLIMUMAB [Suspect]
     Active Substance: GOLIMUMAB
     Indication: Product used for unknown indication
     Route: 058
  3. ADALIMUMAB [Suspect]
     Active Substance: ADALIMUMAB
     Indication: Product used for unknown indication
     Route: 058
  4. COLCHICINE [Suspect]
     Active Substance: COLCHICINE
     Indication: Product used for unknown indication
  5. APREMILAST [Suspect]
     Active Substance: APREMILAST
     Indication: Product used for unknown indication
  6. CERTOLIZUMAB PEGOL [Suspect]
     Active Substance: CERTOLIZUMAB PEGOL
     Indication: Product used for unknown indication

REACTIONS (29)
  - Terminal ileitis [Unknown]
  - Behcet^s syndrome [Unknown]
  - Musculoskeletal stiffness [Unknown]
  - Back pain [Unknown]
  - Mouth ulceration [Unknown]
  - Abdominal pain [Unknown]
  - Folliculitis [Unknown]
  - Aphthous ulcer [Unknown]
  - Musculoskeletal pain [Unknown]
  - Bone marrow oedema [Unknown]
  - Metaplasia [Unknown]
  - Spondylitis [Unknown]
  - Ulcer [Unknown]
  - Musculoskeletal stiffness [Unknown]
  - Hypertension [Unknown]
  - Aphthous ulcer [Unknown]
  - Enteritis [Unknown]
  - Erythema nodosum [Unknown]
  - Sacroiliitis [Unknown]
  - Arthritis [Unknown]
  - Drug intolerance [Unknown]
  - Drug intolerance [Unknown]
  - Diarrhoea [Unknown]
  - Headache [Unknown]
  - Drug ineffective [Unknown]
  - Drug ineffective [Unknown]
  - Therapeutic product effect decreased [Unknown]
  - Therapeutic product effect decreased [Unknown]
  - Spondylitis [Unknown]

NARRATIVE: CASE EVENT DATE: 20230101
